FAERS Safety Report 9531411 (Version 1)
Quarter: 2013Q3

REPORT INFORMATION
  Report Type: Spontaneous
  Country: FR (occurrence: FR)
  Receive Date: 20130918
  Receipt Date: 20130918
  Transmission Date: 20140515
  Serious: Yes (Hospitalization, Other)
  Sender: FDA-Public Use
  Company Number: FR-JNJFOC-20130909651

PATIENT
  Age: 84 Year
  Sex: Female

DRUGS (6)
  1. XARELTO [Suspect]
     Indication: PRODUCT USED FOR UNKNOWN INDICATION
     Route: 048
     Dates: start: 20130130, end: 20130131
  2. APROVEL [Suspect]
     Indication: PRODUCT USED FOR UNKNOWN INDICATION
     Route: 048
     Dates: end: 20130131
  3. HYPERIUM [Suspect]
     Indication: PRODUCT USED FOR UNKNOWN INDICATION
     Route: 048
     Dates: end: 20130131
  4. AUGMENTIN [Concomitant]
     Route: 065
  5. DIFFU K [Concomitant]
     Route: 065
  6. FENOFIBRATE [Concomitant]
     Route: 065

REACTIONS (2)
  - Thrombocytopenia [Recovered/Resolved]
  - Renal failure [Recovered/Resolved]
